FAERS Safety Report 4526558-X (Version None)
Quarter: 2004Q4

REPORT INFORMATION
  Report Type: 
  Country: None (occurrence: None)
  Receive Date: 20041210
  Receipt Date: 20041201
  Transmission Date: 20050328
  Serious: Yes (Hospitalization)
  Sender: FDA-Public Use
  Company Number: 210837

PATIENT
  Age: 17 Year
  Sex: Male
  Weight: 77 kg

DRUGS (1)
  1. NUTROPIN AQ [Suspect]
     Indication: BODY HEIGHT BELOW NORMAL
     Dosage: 5 MG, QD
     Dates: start: 20040501, end: 20040501

REACTIONS (1)
  - KIDNEY TRANSPLANT REJECTION [None]
